FAERS Safety Report 12281661 (Version 1)
Quarter: 2016Q2

REPORT INFORMATION
  Report Type: Spontaneous
  Country: US (occurrence: None)
  Receive Date: 20160418
  Receipt Date: 20160418
  Transmission Date: 20160815
  Serious: No
  Sender: FDA-Public Use
  Company Number: None

PATIENT
  Age: 75 Year
  Sex: Female

DRUGS (1)
  1. CAPECITABINE TAB 500MG [Suspect]
     Active Substance: CAPECITABINE
     Dosage: 1500MG BID 7 DAYS ON ORAL
     Route: 048
     Dates: start: 20150313

REACTIONS (4)
  - Constipation [None]
  - Fatigue [None]
  - Pain in extremity [None]
  - Anaemia [None]

NARRATIVE: CASE EVENT DATE: 20160401
